FAERS Safety Report 24323546 (Version 1)
Quarter: 2024Q3

REPORT INFORMATION
  Report Type: Spontaneous
  Country: FI (occurrence: FI)
  Receive Date: 20240916
  Receipt Date: 20240916
  Transmission Date: 20241016
  Serious: Yes (Other)
  Sender: MYLAN
  Company Number: FI-PFIZER INC-202101884305

PATIENT
  Age: 25 Year
  Sex: Male

DRUGS (3)
  1. ZIPRASIDONE [Suspect]
     Active Substance: ZIPRASIDONE
     Indication: Psychotic disorder
     Dosage: UNK
     Route: 065
     Dates: start: 2020, end: 2020
  2. ZIPRASIDONE [Suspect]
     Active Substance: ZIPRASIDONE
     Indication: Schizophrenia
     Dosage: UNK
     Route: 065
     Dates: start: 2020, end: 2020
  3. PERPHENAZINE [Suspect]
     Active Substance: PERPHENAZINE
     Indication: Schizophrenia
     Dosage: UNK
     Route: 065
     Dates: start: 2020, end: 2020

REACTIONS (2)
  - Neuroleptic malignant syndrome [Unknown]
  - Loss of personal independence in daily activities [Unknown]

NARRATIVE: CASE EVENT DATE: 20200101
